FAERS Safety Report 8220459-1 (Version None)
Quarter: 2012Q1

REPORT INFORMATION
  Report Type: 
  Country: None (occurrence: None)
  Receive Date: 20120320
  Receipt Date: 20120313
  Transmission Date: 20120608
  Serious: Yes (Hospitalization)
  Sender: FDA-Public Use
  Company Number: BR-US-EMD SERONO, INC.-7112926

PATIENT
  Sex: Female

DRUGS (1)
  1. REBIF [Suspect]
     Indication: RELAPSING-REMITTING MULTIPLE SCLEROSIS
     Dates: start: 20120127

REACTIONS (5)
  - INJECTION SITE ERYTHEMA [None]
  - HEADACHE [None]
  - PAIN [None]
  - MUSCULAR WEAKNESS [None]
  - FATIGUE [None]
